FAERS Safety Report 23289928 (Version 2)
Quarter: 2024Q1

REPORT INFORMATION
  Report Type: Spontaneous
  Country: US (occurrence: US)
  Receive Date: 20231212
  Receipt Date: 20240222
  Transmission Date: 20240409
  Serious: Yes (Hospitalization, Other)
  Sender: FDA-Public Use
  Company Number: US-BRISTOL-MYERS SQUIBB COMPANY-2023-179202

PATIENT
  Age: 74 Year
  Sex: Male
  Weight: 58.06 kg

DRUGS (2)
  1. REVLIMID [Suspect]
     Active Substance: LENALIDOMIDE
     Indication: Plasma cell myeloma
     Dosage: 2WKSON/1WKOFF
     Route: 048
     Dates: start: 20221101
  2. REVLIMID [Suspect]
     Active Substance: LENALIDOMIDE
     Dosage: 3WKSON/1WKOFF
     Route: 048

REACTIONS (1)
  - Cerebrovascular accident [Unknown]
